FAERS Safety Report 9864096 (Version 2)
Quarter: 2014Q1

REPORT INFORMATION
  Report Type: Spontaneous
  Country: US (occurrence: US)
  Receive Date: 20140203
  Receipt Date: 20140203
  Transmission Date: 20141002
  Serious: Yes (Other)
  Sender: FDA-Public Use
  Company Number: US-AMGEN-USASP2013085111

PATIENT
  Age: 53 Year
  Sex: Male

DRUGS (1)
  1. ENBREL [Suspect]
     Indication: ANKYLOSING SPONDYLITIS
     Dosage: 50 MG, QWK
     Route: 065
     Dates: start: 20110716, end: 20131116

REACTIONS (4)
  - Tooth abscess [Not Recovered/Not Resolved]
  - Oedema mouth [Not Recovered/Not Resolved]
  - Dental caries [Not Recovered/Not Resolved]
  - Sinusitis [Not Recovered/Not Resolved]
